FAERS Safety Report 8617078-1 (Version None)
Quarter: 2012Q3

REPORT INFORMATION
  Report Type: 
  Country: None (occurrence: None)
  Receive Date: 20120823
  Receipt Date: 20120816
  Transmission Date: 20120928
  Serious: No
  Sender: FDA-Public Use
  Company Number: US-009507513-1208USA007562

PATIENT

DRUGS (2)
  1. SAPHRIS [Suspect]
     Indication: BIPOLAR DISORDER
     Dosage: 5 MG, QD
     Route: 048
  2. LAMICTAL [Concomitant]
     Dosage: 25 MG, HS

REACTIONS (2)
  - WEIGHT INCREASED [None]
  - HYPOAESTHESIA [None]
